FAERS Safety Report 20095624 (Version 2)
Quarter: 2022Q2

REPORT INFORMATION
  Report Type: Spontaneous
  Country: FI (occurrence: FI)
  Receive Date: 20211122
  Receipt Date: 20220628
  Transmission Date: 20220720
  Serious: Yes (Other)
  Sender: FDA-Public Use
  Company Number: FI-GLAXOSMITHKLINE-A0433350A

PATIENT

DRUGS (2)
  1. LINDANE [Suspect]
     Active Substance: LINDANE
     Indication: Acarodermatitis
     Dates: start: 19931201, end: 19940301
  2. LINDANE [Suspect]
     Active Substance: LINDANE
     Indication: Acarodermatitis
     Dates: start: 19931201, end: 19940301

REACTIONS (8)
  - Aplastic anaemia [Unknown]
  - Leukopenia [Unknown]
  - Anaemia [Unknown]
  - Myeloproliferative neoplasm [Unknown]
  - Lymphocytosis [Unknown]
  - Neuropathy peripheral [Unknown]
  - Proctitis [Unknown]
  - Immunoglobulins increased [Unknown]

NARRATIVE: CASE EVENT DATE: 19940701
